FAERS Safety Report 19615814 (Version 2)
Quarter: 2021Q4

REPORT INFORMATION
  Report Type: Report from Study
  Country: CA (occurrence: CA)
  Receive Date: 20210727
  Receipt Date: 20211019
  Transmission Date: 20220303
  Serious: Yes (Other)
  Sender: FDA-Public Use
  Company Number: CA-OTSUKA-2020_033218

PATIENT
  Sex: Female

DRUGS (1)
  1. CEDAZURIDINE\DECITABINE [Suspect]
     Active Substance: CEDAZURIDINE\DECITABINE
     Indication: Myelodysplastic syndrome
     Dosage: (35 MG DECITABINE AND 100 MG CEDAZURIDINE), (CYCLE 1)
     Route: 065
     Dates: start: 20201222

REACTIONS (5)
  - Liver abscess [Not Recovered/Not Resolved]
  - Infection [Unknown]
  - Constipation [Unknown]
  - Neutrophil count decreased [Unknown]
  - Product use issue [Unknown]
